FAERS Safety Report 15271411 (Version 1)
Quarter: 2018Q3

REPORT INFORMATION
  Report Type: Spontaneous
  Country: US (occurrence: US)
  Receive Date: 20180813
  Receipt Date: 20180813
  Transmission Date: 20181010
  Serious: Yes (Hospitalization)
  Sender: FDA-Public Use
  Company Number: US-JUBILANT CADISTA PHARMACEUTICALS-2018JUB00326

PATIENT
  Age: 53 Year
  Sex: Female

DRUGS (3)
  1. ACTH [Suspect]
     Active Substance: CORTICOTROPIN
     Dosage: 40 UNK, UNK
     Route: 065
  2. ACTH [Suspect]
     Active Substance: CORTICOTROPIN
     Dosage: 80 MG, UNK
  3. PREDNISONE. [Suspect]
     Active Substance: PREDNISONE
     Indication: RHEUMATOID ARTHRITIS
     Dosage: 10 MG, 1X/DAY
     Route: 065

REACTIONS (1)
  - Diabetic ketoacidosis [Recovering/Resolving]
